FAERS Safety Report 20113309 (Version 2)
Quarter: 2021Q4

REPORT INFORMATION
  Report Type: Spontaneous
  Country: US (occurrence: US)
  Receive Date: 20211125
  Receipt Date: 20211213
  Transmission Date: 20220304
  Serious: Yes (Hospitalization)
  Sender: FDA-Public Use
  Company Number: US-GW PHARMA-202111USGW05727

PATIENT

DRUGS (5)
  1. EPIDIOLEX [Suspect]
     Active Substance: CANNABIDIOL
     Indication: Lennox-Gastaut syndrome
     Dosage: 25 MILLIGRAM, QD, EVERY NIGHT
     Route: 048
     Dates: start: 20211109, end: 202111
  2. EPIDIOLEX [Suspect]
     Active Substance: CANNABIDIOL
     Dosage: 25 MILLIGRAM, BID
     Route: 048
     Dates: start: 202111, end: 202111
  3. EPIDIOLEX [Suspect]
     Active Substance: CANNABIDIOL
     Dosage: 100 MILLIGRAM, BID (NOW AT FULL DOSE OF 100 MG BID AFTER DOSE INCREASE)
     Route: 048
     Dates: start: 202111
  4. ONFI [Concomitant]
     Active Substance: CLOBAZAM
     Indication: Epilepsy
     Dosage: 10 MILLIGRAM, BID, DOSE INCREASED
     Route: 065
     Dates: start: 202111
  5. KEPPRA [Concomitant]
     Active Substance: LEVETIRACETAM
     Indication: Epilepsy
     Dosage: 120 MILLIGRAM/KILOGRAM, QD, DOSE INCREASED
     Route: 065

REACTIONS (3)
  - Seizure [Recovering/Resolving]
  - Seizure [Recovering/Resolving]
  - Seizure [Recovering/Resolving]

NARRATIVE: CASE EVENT DATE: 20211101
